FAERS Safety Report 15839228 (Version 1)
Quarter: 2019Q1

REPORT INFORMATION
  Report Type: Spontaneous
  Country: GR (occurrence: GR)
  Receive Date: 20190117
  Receipt Date: 20190117
  Transmission Date: 20190417
  Serious: Yes (Other)
  Sender: FDA-Public Use
  Company Number: GR-JNJFOC-20190118913

PATIENT
  Age: 72 Year
  Sex: Male

DRUGS (1)
  1. XARELTO [Suspect]
     Active Substance: RIVAROXABAN
     Indication: ATRIAL FIBRILLATION
     Route: 048

REACTIONS (4)
  - Serum ferritin decreased [Unknown]
  - Transient ischaemic attack [Unknown]
  - Mean cell volume decreased [Unknown]
  - Iron deficiency [Unknown]

NARRATIVE: CASE EVENT DATE: 201807
